FAERS Safety Report 12571419 (Version 1)
Quarter: 2016Q3

REPORT INFORMATION
  Report Type: Spontaneous
  Country: US (occurrence: US)
  Receive Date: 20160719
  Receipt Date: 20160719
  Transmission Date: 20161109
  Serious: No
  Sender: FDA-Public Use
  Company Number: US-ENDO PHARMACEUTICALS INC.-2016-003725

PATIENT
  Age: 74 Year
  Sex: Female
  Weight: 55.84 kg

DRUGS (1)
  1. ALLOPURINOL TABLETS 100MG [Suspect]
     Active Substance: ALLOPURINOL
     Indication: BLOOD URIC ACID INCREASED
     Route: 048
     Dates: start: 20160425, end: 20160512

REACTIONS (10)
  - Asthenia [Not Recovered/Not Resolved]
  - Arthralgia [Not Recovered/Not Resolved]
  - Muscle spasms [Not Recovered/Not Resolved]
  - Tremor [Not Recovered/Not Resolved]
  - Faeces discoloured [Recovered/Resolved]
  - Abasia [Not Recovered/Not Resolved]
  - Abnormal loss of weight [Recovered/Resolved]
  - Meniscus injury [Unknown]
  - Frequent bowel movements [Recovered/Resolved]
  - Gait disturbance [Recovered/Resolved]

NARRATIVE: CASE EVENT DATE: 2016
